FAERS Safety Report 7069444-6 (Version None)
Quarter: 2010Q4

REPORT INFORMATION
  Report Type: 
  Country: None (occurrence: None)
  Receive Date: 20101028
  Receipt Date: 20101020
  Transmission Date: 20110411
  Serious: Yes (Hospitalization)
  Sender: FDA-Public Use
  Company Number: US-MPIJNJ-2010-05307

PATIENT
  Sex: Female
  Weight: 66.893 kg

DRUGS (6)
  1. VELCADE [Suspect]
     Indication: B-CELL LYMPHOMA
     Dosage: 2.13 MG, CYCLIC
     Dates: start: 20100921, end: 20101012
  2. RITUXIMAB [Suspect]
     Indication: B-CELL LYMPHOMA
     Dosage: 615 MG, CYCLIC
     Dates: start: 20100921, end: 20101012
  3. CYCLOPHOSPHAMIDE [Suspect]
     Indication: B-CELL LYMPHOMA
     Dosage: 1230 MG, CYCLIC
     Dates: start: 20100921, end: 20101012
  4. DOXORUBICIN [Suspect]
     Indication: B-CELL LYMPHOMA
     Dosage: 82 MG, CYCLIC
     Dates: start: 20100921, end: 20101012
  5. VINCRISTINE [Suspect]
     Indication: B-CELL LYMPHOMA
     Dosage: 2.29 MG, CYCLIC
     Dates: start: 20100921, end: 20101012
  6. PREDNISONE [Suspect]
     Indication: B-CELL LYMPHOMA
     Dosage: 10 MG, CYCLIC
     Dates: start: 20100921, end: 20101012

REACTIONS (1)
  - DIVERTICULITIS [None]
